FAERS Safety Report 7458553-5 (Version None)
Quarter: 2011Q2

REPORT INFORMATION
  Report Type: 
  Country: None (occurrence: None)
  Receive Date: 20110503
  Receipt Date: 20110503
  Transmission Date: 20111010
  Serious: Yes (Hospitalization)
  Sender: FDA-Public Use
  Company Number: None

PATIENT
  Sex: Female
  Weight: 48.2 kg

DRUGS (3)
  1. FLUOROURACIL [Suspect]
     Dosage: 1100 MG
  2. CISPLATIN [Suspect]
     Dosage: 109 MG
  3. ERBITUX [Suspect]
     Dosage: 365 MG

REACTIONS (7)
  - ASTHENIA [None]
  - HICCUPS [None]
  - VOMITING [None]
  - NAUSEA [None]
  - DIARRHOEA [None]
  - NO THERAPEUTIC RESPONSE [None]
  - HYPOPHAGIA [None]
